FAERS Safety Report 4896975-7 (Version None)
Quarter: 2006Q1

REPORT INFORMATION
  Report Type: 
  Country: None (occurrence: None)
  Receive Date: 20060127
  Receipt Date: 20060120
  Transmission Date: 20060701
  Serious: Yes (Other)
  Sender: FDA-Public Use
  Company Number: 2005010598

PATIENT
  Age: 59 Year
  Sex: Female

DRUGS (8)
  1. CELEBREX [Suspect]
     Indication: POLYARTHRITIS
     Dosage: 400 MG, ORAL
     Route: 048
     Dates: start: 20040213, end: 20040221
  2. ATORVASTATIN CALCIUM [Concomitant]
  3. URSODIOL [Concomitant]
  4. ASPIRIN [Concomitant]
  5. CO-CODAMOL          (CODEINE PHOSPHATE, PARACETAMOL) [Concomitant]
  6. GABAPENTIN [Concomitant]
  7. LANSOPRAZOLE [Concomitant]
  8. SULFASALAZINE [Concomitant]

REACTIONS (1)
  - TRANSIENT ISCHAEMIC ATTACK [None]
